FAERS Safety Report 6891200-X (Version None)
Quarter: 2010Q3

REPORT INFORMATION
  Report Type: 
  Country: None (occurrence: None)
  Receive Date: 20100731
  Receipt Date: 20090622
  Transmission Date: 20110219
  Serious: No
  Sender: FDA-Public Use
  Company Number: US-PFIZER INC-2009232084

PATIENT
  Sex: Female
  Weight: 56.236 kg

DRUGS (1)
  1. LIPITOR [Suspect]
     Dosage: 20 MG, 1X/DAY
     Dates: start: 20090501, end: 20090101

REACTIONS (4)
  - FEELING ABNORMAL [None]
  - MOBILITY DECREASED [None]
  - OEDEMA PERIPHERAL [None]
  - PAIN [None]
